FAERS Safety Report 9358762 (Version 1)
Quarter: 2013Q2

REPORT INFORMATION
  Report Type: Spontaneous
  Country: SA (occurrence: SA)
  Receive Date: 20130620
  Receipt Date: 20130620
  Transmission Date: 20140414
  Serious: Yes (Other)
  Sender: FDA-Public Use
  Company Number: PHHY2013SA062292

PATIENT
  Age: 39 Year
  Sex: Female

DRUGS (1)
  1. CARBAMAZEPINE [Suspect]
     Indication: TEMPORAL LOBE EPILEPSY
     Dosage: UNK UKN, UNK

REACTIONS (3)
  - Encephalopathy [Recovered/Resolved]
  - Mental disorder [Recovered/Resolved]
  - Maternal exposure during pregnancy [Unknown]
